FAERS Safety Report 12595829 (Version 1)
Quarter: 2016Q3

REPORT INFORMATION
  Report Type: Spontaneous
  Country: US (occurrence: US)
  Receive Date: 20160727
  Receipt Date: 20160727
  Transmission Date: 20161109
  Serious: No
  Sender: FDA-Public Use
  Company Number: US-TEVA-672752ACC

PATIENT
  Age: 40 Year
  Sex: Female
  Weight: 90.8 kg

DRUGS (1)
  1. PARAGARD T 380A [Suspect]
     Active Substance: COPPER
     Indication: CONTRACEPTION
     Dates: start: 2012, end: 20160503

REACTIONS (10)
  - Fungal infection [Not Recovered/Not Resolved]
  - Anxiety [Recovered/Resolved]
  - Uterine leiomyoma [Unknown]
  - Blister [Unknown]
  - Vulvovaginal dryness [Not Recovered/Not Resolved]
  - Vulvovaginal burning sensation [Not Recovered/Not Resolved]
  - Insomnia [Recovered/Resolved]
  - Vulvovaginal pruritus [Recovered/Resolved]
  - Allergy to metals [Not Recovered/Not Resolved]
  - Eating disorder [Recovered/Resolved]

NARRATIVE: CASE EVENT DATE: 201602
